FAERS Safety Report 7128313-3 (Version None)
Quarter: 2010Q4

REPORT INFORMATION
  Report Type: 
  Country: None (occurrence: None)
  Receive Date: 20101130
  Receipt Date: 20101118
  Transmission Date: 20110411
  Serious: Yes (Other)
  Sender: FDA-Public Use
  Company Number: PHHY2010BR28030

PATIENT
  Sex: Male

DRUGS (1)
  1. DIOVAN [Suspect]
     Dosage: 320 MG, UNK

REACTIONS (4)
  - ARRHYTHMIA [None]
  - ARTERIAL DISORDER [None]
  - PERIPHERAL VASCULAR DISORDER [None]
  - VENTRICULAR DYSFUNCTION [None]
